FAERS Safety Report 5357489-3 (Version None)
Quarter: 2007Q2

REPORT INFORMATION
  Report Type: 
  Country: None (occurrence: None)
  Receive Date: 20070530
  Receipt Date: 20061109
  Transmission Date: 20071010
  Serious: Yes (Other)
  Sender: FDA-Public Use
  Company Number: US_0504116392

PATIENT
  Age: 40 Year
  Sex: Female
  Weight: 59 kg

DRUGS (25)
  1. ZYPREXA [Suspect]
     Indication: DEPRESSION
     Dosage: 45 MG, DAILY (1/D), ORAL
     Route: 048
     Dates: start: 20010607, end: 20050101
  2. ABILIFY [Concomitant]
  3. HALOPERIDOL [Concomitant]
  4. PROTONIX [Concomitant]
  5. TRAZODONE HCL [Concomitant]
  6. ZOLOFT (SERTRALINE HYDROCODONE) [Concomitant]
  7. LIPITOR [Concomitant]
  8. HYZAAR [Concomitant]
  9. TOPAMAX [Concomitant]
  10. REMERON [Concomitant]
  11. BACLOFEN [Concomitant]
  12. NAPROSYN [Concomitant]
  13. STRATTERA [Concomitant]
  14. ZANTAC [Concomitant]
  15. NEURONTIN [Concomitant]
  16. CLONAZEPAM [Concomitant]
  17. DIPHENHYDRAMINE HCL [Concomitant]
  18. GABITRIL [Concomitant]
  19. LEXAPRO [Concomitant]
  20. DARVOCET [Concomitant]
  21. CELEBREX [Concomitant]
  22. BENTYL [Concomitant]
  23. ACCOLATE [Concomitant]
  24. ZYRTEC [Concomitant]
  25. LEVSIN (HYOSCYAMINE SULFATE) [Concomitant]

REACTIONS (6)
  - CHOLECYSTECTOMY [None]
  - DIABETES MELLITUS NON-INSULIN-DEPENDENT [None]
  - HYPERGLYCAEMIA [None]
  - HYPERTENSION [None]
  - PRESCRIBED OVERDOSE [None]
  - WEIGHT INCREASED [None]
